FAERS Safety Report 9018809 (Version 2)
Quarter: 2013Q1

REPORT INFORMATION
  Report Type: Report from Study
  Country: US (occurrence: US)
  Receive Date: 20130118
  Receipt Date: 20130220
  Transmission Date: 20140127
  Serious: Yes (Hospitalization, Other)
  Sender: FDA-Public Use
  Company Number: US-ABBOTT-13P-163-1033958-00

PATIENT
  Age: 74 Year
  Sex: Female

DRUGS (4)
  1. HUMIRA [Suspect]
     Indication: CROHN^S DISEASE
     Dates: start: 20120917, end: 20121117
  2. UNKNOWN HEART MEDICATION [Concomitant]
     Indication: PRODUCT USED FOR UNKNOWN INDICATION
     Dosage: DAILY
  3. ENTOCORT [Concomitant]
     Indication: CROHN^S DISEASE
  4. POTASSIUM [Concomitant]
     Indication: CROHN^S DISEASE

REACTIONS (3)
  - Device occlusion [Recovered/Resolved]
  - Hypoaesthesia [Recovered/Resolved]
  - Thrombosis [Recovered/Resolved]
